FAERS Safety Report 23716551 (Version 1)
Quarter: 2024Q2

REPORT INFORMATION
  Report Type: Spontaneous
  Country: FR (occurrence: FR)
  Receive Date: 20240408
  Receipt Date: 20240408
  Transmission Date: 20240716
  Serious: Yes (Hospitalization)
  Sender: FDA-Public Use
  Company Number: None

PATIENT
  Age: 32 Year
  Sex: Female
  Weight: 52 kg

DRUGS (3)
  1. CHORIOGONADOTROPIN ALFA [Suspect]
     Active Substance: CHORIOGONADOTROPIN ALFA
     Indication: Ovulation induction
     Route: 058
     Dates: start: 20220222, end: 20220222
  2. GONAL-F [Suspect]
     Active Substance: FOLLITROPIN
     Indication: Controlled ovarian stimulation
     Route: 058
     Dates: start: 20220210, end: 20220221
  3. ORGALUTRAN [Suspect]
     Active Substance: GANIRELIX ACETATE
     Indication: Controlled ovarian stimulation
     Route: 058
     Dates: start: 20220217, end: 20220222

REACTIONS (4)
  - Dyspnoea exertional [Recovered/Resolved]
  - Abdominal distension [Recovered/Resolved]
  - Ovarian hyperstimulation syndrome [Recovered/Resolved]
  - Weight increased [Recovered/Resolved]

NARRATIVE: CASE EVENT DATE: 20220309
